FAERS Safety Report 8271222 (Version 7)
Quarter: 2013Q4

REPORT INFORMATION
  Report Type: Report from Study
  Country: DE (occurrence: DE)
  Receive Date: 20111201
  Receipt Date: 20131202
  Transmission Date: 20140711
  Serious: Yes (Other)
  Sender: FDA-Public Use
  Company Number: DE-CELGENEUS-062-C5013-11112583

PATIENT
  Age: 78 Year
  Sex: Female
  Weight: 95 kg

DRUGS (9)
  1. CC-5013 [Suspect]
     Indication: PLASMA CELL MYELOMA
     Dosage: 25 MILLIGRAM
     Route: 048
     Dates: start: 20081229
  2. CC-5013 [Suspect]
     Dosage: 5 MILLIGRAM
     Route: 048
     Dates: start: 20100712, end: 20100809
  3. CC-5013 [Suspect]
     Dosage: 7.5 MILLIGRAM
     Route: 048
     Dates: start: 20100813, end: 201105
  4. DEXAMETHASONE [Suspect]
     Indication: PLASMA CELL MYELOMA
     Dosage: 20 MILLIGRAM
     Route: 065
     Dates: start: 20081229, end: 20100809
  5. DEXAMETHASONE [Suspect]
     Route: 065
     Dates: start: 201008, end: 201105
  6. VELCADE [Suspect]
     Indication: PLASMA CELL MYELOMA
     Dosage: 20 MILLIGRAM
     Route: 065
     Dates: start: 201105, end: 201110
  7. MELPHALAN [Suspect]
     Indication: PLASMA CELL MYELOMA
     Dosage: 20 MILLIGRAM
     Route: 065
     Dates: start: 201110
  8. PREDNISONE [Suspect]
     Indication: PLASMA CELL MYELOMA
     Dosage: 50 MILLIGRAM
     Route: 065
     Dates: start: 201110
  9. THALIDOMIDE [Suspect]
     Indication: PLASMA CELL MYELOMA
     Dosage: 50 MILLIGRAM
     Route: 048
     Dates: start: 201110

REACTIONS (1)
  - Breast cancer metastatic [Not Recovered/Not Resolved]
